FAERS Safety Report 9486491 (Version 1)
Quarter: 2013Q3

REPORT INFORMATION
  Report Type: Spontaneous
  Country: US (occurrence: None)
  Receive Date: 20130827
  Receipt Date: 20130827
  Transmission Date: 20140515
  Serious: Yes (Other)
  Sender: FDA-Public Use
  Company Number: None

PATIENT
  Age: 28 Year
  Sex: Female
  Weight: 113.4 kg

DRUGS (1)
  1. NITROFUR [Suspect]
     Indication: URINARY TRACT INFECTION
     Dates: start: 20130728, end: 20130731

REACTIONS (8)
  - Headache [None]
  - Musculoskeletal stiffness [None]
  - Diarrhoea [None]
  - Vomiting [None]
  - Pain in extremity [None]
  - Myalgia [None]
  - Pain in extremity [None]
  - Arthralgia [None]
